FAERS Safety Report 24550971 (Version 3)
Quarter: 2024Q4

REPORT INFORMATION
  Report Type: Report from Study
  Country: EG (occurrence: EG)
  Receive Date: 20241025
  Receipt Date: 20241113
  Transmission Date: 20250115
  Serious: Yes (Hospitalization)
  Sender: TAKEDA
  Company Number: EG-JNJFOC-20241055143

PATIENT
  Age: 43 Year
  Sex: Female
  Weight: 102 kg

DRUGS (7)
  1. BORTEZOMIB [Suspect]
     Active Substance: BORTEZOMIB
     Indication: Plasma cell myeloma
     Dosage: UNK
     Dates: start: 20240210, end: 20240731
  2. DARATUMUMAB\HYALURONIDASE-FIHJ [Suspect]
     Active Substance: DARATUMUMAB\HYALURONIDASE-FIHJ
     Indication: Plasma cell myeloma
     Dosage: 1800 MILLIGRAM
     Dates: start: 20240317, end: 20240731
  3. DARATUMUMAB\HYALURONIDASE-FIHJ [Suspect]
     Active Substance: DARATUMUMAB\HYALURONIDASE-FIHJ
     Dosage: 1800 MILLIGRAM, Q3WEEKS
     Dates: start: 20241023
  4. ACYCLOVIR [Concomitant]
     Active Substance: ACYCLOVIR
     Indication: Product used for unknown indication
     Dosage: 400 MILLIGRAM, Q6HR
     Dates: start: 202402
  5. LEVOFLOXACIN [Concomitant]
     Active Substance: LEVOFLOXACIN
     Indication: Product used for unknown indication
     Dosage: 500 MILLIGRAM, QD
     Dates: start: 202402
  6. LENALIDOMIDE [Concomitant]
     Active Substance: LENALIDOMIDE
     Indication: Product used for unknown indication
     Dosage: 5 MILLIGRAM, QD
     Dates: start: 202402, end: 20241023
  7. Clovirax [Concomitant]
     Dosage: UNK

REACTIONS (10)
  - Bone marrow transplant [Unknown]
  - Renal pain [Unknown]
  - Nail discolouration [Unknown]
  - Mobility decreased [Unknown]
  - Bone pain [Unknown]
  - Insomnia [Unknown]
  - Limb discomfort [Unknown]
  - Pain in extremity [Unknown]
  - Lethargy [Unknown]
  - Asthenia [Unknown]

NARRATIVE: CASE EVENT DATE: 20240808
